FAERS Safety Report 9663287 (Version 2)
Quarter: 2013Q4

REPORT INFORMATION
  Report Type: Spontaneous
  Country: US (occurrence: US)
  Receive Date: 20131101
  Receipt Date: 20131120
  Transmission Date: 20140711
  Serious: Yes (Death, Hospitalization, Other)
  Sender: FDA-Public Use
  Company Number: US-AMGEN-USASP2013076387

PATIENT
  Age: 85 Year
  Sex: Female
  Weight: 89.34 kg

DRUGS (5)
  1. PROLIA [Suspect]
     Indication: PRODUCT USED FOR UNKNOWN INDICATION
     Dosage: 60 MG, Q6MO
     Route: 058
     Dates: start: 20130521
  2. PROLIA [Suspect]
     Dosage: UNK
     Route: 058
  3. FLAGYL                             /00012501/ [Concomitant]
     Indication: CLOSTRIDIUM DIFFICILE INFECTION
     Dosage: 500 UNK, QID
     Route: 048
     Dates: start: 20130919
  4. FUROSEMIDE [Concomitant]
     Indication: CARDIAC FAILURE CHRONIC
     Dosage: 20 UNK, QD
     Route: 048
  5. MEGACE [Concomitant]
     Indication: WEIGHT DECREASED
     Dosage: 7 ML, BID
     Route: 048
     Dates: start: 20130825

REACTIONS (8)
  - Death [Fatal]
  - Diverticulum [Unknown]
  - Clostridium difficile infection [Unknown]
  - Cardiac failure acute [Unknown]
  - Weight decreased [Unknown]
  - Hypotension [Unknown]
  - Dehydration [Unknown]
  - Asthenia [Unknown]
